FAERS Safety Report 5382985-2 (Version None)
Quarter: 2007Q3

REPORT INFORMATION
  Report Type: 
  Country: None (occurrence: None)
  Receive Date: 20070710
  Receipt Date: 20070706
  Transmission Date: 20080115
  Serious: Yes (Life-Threatening)
  Sender: FDA-Public Use
  Company Number: B0473424A

PATIENT
  Age: 24 Year
  Sex: Female

DRUGS (3)
  1. PAXIL [Suspect]
     Indication: DEPRESSION
     Route: 048
     Dates: start: 20060710, end: 20070424
  2. SEPAZON [Suspect]
     Indication: DEPRESSION
     Dosage: 1MG TWICE PER DAY
     Route: 048
     Dates: start: 20060710, end: 20070424
  3. ROHYPNOL [Suspect]
     Indication: INSOMNIA
     Dosage: 1MG PER DAY
     Route: 048
     Dates: start: 20060913, end: 20070330

REACTIONS (7)
  - ELEVATED MOOD [None]
  - EMOTIONAL DISTRESS [None]
  - INSOMNIA [None]
  - NIGHTMARE [None]
  - OVERDOSE [None]
  - SELF-INJURIOUS IDEATION [None]
  - SUICIDE ATTEMPT [None]
